FAERS Safety Report 5911958-3 (Version None)
Quarter: 2008Q4

REPORT INFORMATION
  Report Type: 
  Country: None (occurrence: None)
  Receive Date: 20081008
  Receipt Date: 20080930
  Transmission Date: 20090506
  Serious: Yes (Other)
  Sender: FDA-Public Use
  Company Number: PHEH2008US08798

PATIENT
  Sex: Female

DRUGS (1)
  1. TEKTURNA HCT [Suspect]
     Dosage: UNK

REACTIONS (3)
  - ORAL DISORDER [None]
  - ORAL LICHEN PLANUS [None]
  - PEMPHIGUS [None]
